FAERS Safety Report 18712297 (Version 3)
Quarter: 2021Q1

REPORT INFORMATION
  Report Type: Spontaneous
  Country: US (occurrence: US)
  Receive Date: 20210107
  Receipt Date: 20210309
  Transmission Date: 20210419
  Serious: Yes (Hospitalization, Other)
  Sender: FDA-Public Use
  Company Number: US-PFIZER INC-2021007200

PATIENT
  Age: 62 Year
  Sex: Male
  Weight: 95 kg

DRUGS (2)
  1. XELJANZ XR [Suspect]
     Active Substance: TOFACITINIB CITRATE
     Indication: RHEUMATOID ARTHRITIS
     Dosage: 11 MG, 1X/DAY
     Route: 048
     Dates: start: 202010, end: 20201216
  2. XELJANZ XR [Suspect]
     Active Substance: TOFACITINIB CITRATE
     Dosage: 11 MG, 1X/DAY
     Route: 048
     Dates: start: 20201015, end: 20201222

REACTIONS (9)
  - Pulmonary embolism [Recovering/Resolving]
  - Pulmonary thrombosis [Unknown]
  - Pneumonia [Unknown]
  - Deep vein thrombosis [Recovering/Resolving]
  - Palpitations [Unknown]
  - Coronavirus test positive [Unknown]
  - Dyspnoea [Recovering/Resolving]
  - Blood blister [Not Recovered/Not Resolved]
  - Thrombosis [Unknown]

NARRATIVE: CASE EVENT DATE: 2020
